FAERS Safety Report 9380783 (Version 1)
Quarter: 2013Q3

REPORT INFORMATION
  Report Type: Spontaneous
  Country: US (occurrence: US)
  Receive Date: 20130702
  Receipt Date: 20130702
  Transmission Date: 20140515
  Serious: Yes (Other)
  Sender: FDA-Public Use
  Company Number: US-US-EMD SERONO, INC.-7220244

PATIENT
  Sex: Female

DRUGS (1)
  1. REBIF [Suspect]
     Indication: MULTIPLE SCLEROSIS
     Dates: start: 201305

REACTIONS (4)
  - Suicidal ideation [Not Recovered/Not Resolved]
  - Contusion [Not Recovered/Not Resolved]
  - Visual impairment [Not Recovered/Not Resolved]
  - Influenza like illness [Not Recovered/Not Resolved]
